FAERS Safety Report 6894166-1 (Version None)
Quarter: 2010Q3

REPORT INFORMATION
  Report Type: 
  Country: None (occurrence: None)
  Receive Date: 20100802
  Receipt Date: 20100723
  Transmission Date: 20110219
  Serious: Yes (Other)
  Sender: FDA-Public Use
  Company Number: CN-JNJFOC-20100707619

PATIENT
  Age: 55 Year
  Sex: Female

DRUGS (2)
  1. NIZORAL [Suspect]
     Indication: SKIN EXFOLIATION
     Route: 048
  2. NIZORAL [Suspect]
     Indication: FUNGAL INFECTION
     Route: 048

REACTIONS (3)
  - BLISTER [None]
  - PRURITUS [None]
  - SKIN EXFOLIATION [None]
